FAERS Safety Report 4661290-3 (Version None)
Quarter: 2005Q2

REPORT INFORMATION
  Report Type: 
  Country: None (occurrence: None)
  Receive Date: 20050513
  Receipt Date: 20050503
  Transmission Date: 20051028
  Serious: Yes (Hospitalization)
  Sender: FDA-Public Use
  Company Number: US-BRISTOL-MYERS SQUIBB COMPANY-12955001

PATIENT
  Age: 38 Year
  Sex: Female
  Weight: 56 kg

DRUGS (12)
  1. CISPLATIN [Suspect]
     Indication: SQUAMOUS CELL CARCINOMA
     Dates: start: 20010321, end: 20010516
  2. CISPLATIN [Suspect]
     Route: 042
     Dates: start: 20010530, end: 20010530
  3. BLINDED: CETUXIMAB [Suspect]
     Indication: SQUAMOUS CELL CARCINOMA
     Dates: start: 20010321, end: 20010516
  4. BLINDED: CETUXIMAB [Suspect]
     Route: 042
     Dates: start: 20010530, end: 20010530
  5. BLINDED: PLACEBO [Suspect]
     Indication: SQUAMOUS CELL CARCINOMA
     Dates: start: 20010321, end: 20010516
  6. BLINDED: PLACEBO [Suspect]
     Route: 042
     Dates: start: 20010530, end: 20010530
  7. BENADRYL [Concomitant]
  8. DECADRON [Concomitant]
  9. DURAGESIC-100 [Concomitant]
  10. NEURONTIN [Concomitant]
  11. OXYCODONE HCL [Concomitant]
  12. REGLAN [Concomitant]

REACTIONS (2)
  - DEHYDRATION [None]
  - ORTHOSTATIC HYPOTENSION [None]
